FAERS Safety Report 5400225-2 (Version None)
Quarter: 2007Q3

REPORT INFORMATION
  Report Type: 
  Country: None (occurrence: None)
  Receive Date: 20070727
  Receipt Date: 20070727
  Transmission Date: 20080115
  Serious: Yes (Life-Threatening, Hospitalization)
  Sender: FDA-Public Use
  Company Number: None

PATIENT
  Age: 81 Year
  Sex: Male

DRUGS (8)
  1. WARFARIN SODIUM [Suspect]
     Indication: ATRIAL FIBRILLATION
     Dosage: 5 MG 4 DAYS OF THE WEEK PO
     Route: 048
  2. WARFARIN SODIUM [Suspect]
     Dosage: 2.5 MG 3 DAYS OF THE WEEK PO
     Route: 048
  3. HYDROCHLOROTHIAZIDE [Concomitant]
  4. LOTREL [Concomitant]
  5. LIPITOR [Concomitant]
  6. TOPROL-XL [Concomitant]
  7. MIDRIN [Concomitant]
  8. BENADRYL [Concomitant]

REACTIONS (5)
  - COAGULOPATHY [None]
  - FALL [None]
  - HEAD INJURY [None]
  - SUBARACHNOID HAEMORRHAGE [None]
  - SUBDURAL HAEMORRHAGE [None]
